FAERS Safety Report 21396659 (Version 1)
Quarter: 2022Q3

REPORT INFORMATION
  Report Type: Report from Study
  Country: US (occurrence: US)
  Receive Date: 20220930
  Receipt Date: 20220930
  Transmission Date: 20221026
  Serious: Yes (Other)
  Sender: FDA-Public Use
  Company Number: US-VERICEL-US-VCEL-20-002930

PATIENT
  Age: 15 Year
  Sex: Female

DRUGS (1)
  1. MACI [Suspect]
     Active Substance: AUTOLOGOUS CULTURED CHONDROCYTES\SUS SCROFA COLLAGEN
     Indication: Cartilage injury
     Dosage: 1 DOSAGE FORM, SINGLE
     Route: 050
     Dates: start: 20200528, end: 20200528

REACTIONS (5)
  - Joint noise [Not Recovered/Not Resolved]
  - Sensory loss [Not Recovered/Not Resolved]
  - Arthralgia [Not Recovered/Not Resolved]
  - Joint lock [Not Recovered/Not Resolved]
  - Off label use [Not Recovered/Not Resolved]

NARRATIVE: CASE EVENT DATE: 20200528
